FAERS Safety Report 9940484 (Version 1)
Quarter: 2014Q1

REPORT INFORMATION
  Report Type: Spontaneous
  Country: TR (occurrence: TR)
  Receive Date: 20140303
  Receipt Date: 20140303
  Transmission Date: 20141002
  Serious: Yes (Hospitalization)
  Sender: FDA-Public Use
  Company Number: TR-MYLANLABS-2014S1003850

PATIENT
  Age: 7 Year
  Sex: Female

DRUGS (2)
  1. CLONAZEPAM [Suspect]
     Dosage: 0.05 MG/KG/DAY
     Route: 065
  2. OXCARBAZEPINE [Suspect]
     Dosage: 22 MG/KG/DAY
     Route: 065

REACTIONS (2)
  - Hepatotoxicity [Recovered/Resolved]
  - Convulsion [Unknown]
